FAERS Safety Report 19570759 (Version 2)
Quarter: 2021Q4

REPORT INFORMATION
  Report Type: Spontaneous
  Country: JP (occurrence: JP)
  Receive Date: 20210716
  Receipt Date: 20211207
  Transmission Date: 20220303
  Serious: Yes (Other)
  Sender: FDA-Public Use
  Company Number: JP-BAYER-2021-172367

PATIENT

DRUGS (5)
  1. EYLEA [Suspect]
     Active Substance: AFLIBERCEPT
     Indication: Diabetic retinal oedema
     Dosage: LEFT EYE, 0.05ML, MONTHLY ADMINISTRATION ON FEBRUARY
     Route: 031
     Dates: start: 20210104
  2. EYLEA [Suspect]
     Active Substance: AFLIBERCEPT
     Dosage: LEFT EYE, 0.05ML
     Route: 031
     Dates: start: 20210309, end: 20210309
  3. EYLEA [Suspect]
     Active Substance: AFLIBERCEPT
     Dosage: LEFT EYE, 2MG(0.05ML)
     Route: 031
     Dates: start: 20210413, end: 20210413
  4. EYLEA [Suspect]
     Active Substance: AFLIBERCEPT
     Dosage: LEFT EYE, 2MG(0.05ML)
     Route: 031
     Dates: start: 20210713, end: 20210713
  5. TRIAMCINOLONE ACETONIDE [Concomitant]
     Active Substance: TRIAMCINOLONE ACETONIDE
     Indication: Diabetic retinal oedema
     Dosage: UNK
     Dates: start: 2020

REACTIONS (1)
  - Hypotony maculopathy [Recovered/Resolved]

NARRATIVE: CASE EVENT DATE: 20210414
